FAERS Safety Report 11103400 (Version 1)
Quarter: 2015Q2

REPORT INFORMATION
  Report Type: Spontaneous
  Country: AU (occurrence: AU)
  Receive Date: 20150511
  Receipt Date: 20150511
  Transmission Date: 20150821
  Serious: Yes (Other)
  Sender: FDA-Public Use
  Company Number: AU-ACTELION-A-CH2014-102487

PATIENT
  Age: 31 Year
  Sex: Female

DRUGS (3)
  1. TRACLEER [Suspect]
     Active Substance: BOSENTAN\BOSENTAN MONOHYDRATE
     Indication: PULMONARY ARTERIAL HYPERTENSION
     Dosage: 125 MG, BID
     Route: 048
     Dates: start: 201004
  2. SILDENAFIL. [Concomitant]
     Active Substance: SILDENAFIL
     Dosage: 50 MG, TID
     Dates: start: 201204
  3. VELETRI [Suspect]
     Active Substance: EPOPROSTENOL
     Indication: PULMONARY ARTERIAL HYPERTENSION
     Dosage: 2 NG/KG, PER MIN
     Route: 042
     Dates: start: 20140717

REACTIONS (7)
  - Echocardiogram abnormal [Unknown]
  - Condition aggravated [Unknown]
  - Lung transplant [Unknown]
  - Atrial septal defect repair [Unknown]
  - Walking distance test abnormal [Unknown]
  - Pulmonary arterial hypertension [Unknown]
  - Catheterisation cardiac abnormal [Unknown]

NARRATIVE: CASE EVENT DATE: 20140701
